FAERS Safety Report 24223358 (Version 2)
Quarter: 2024Q4

REPORT INFORMATION
  Report Type: Spontaneous
  Country: CA (occurrence: CA)
  Receive Date: 20240819
  Receipt Date: 20241119
  Transmission Date: 20250115
  Serious: Yes (Life-Threatening, Disabling, Other)
  Sender: BAUSCH AND LOMB
  Company Number: CA-BAUSCH-BL-2024-012374

PATIENT
  Sex: Female

DRUGS (4)
  1. DICLOFENAC DIETHYLAMINE [Suspect]
     Active Substance: DICLOFENAC DIETHYLAMINE
     Indication: Product used for unknown indication
     Route: 065
  2. DICLOFENAC SODIUM [Suspect]
     Active Substance: DICLOFENAC SODIUM
     Indication: Rheumatoid arthritis
     Route: 065
  3. DICLOFENAC SODIUM [Suspect]
     Active Substance: DICLOFENAC SODIUM
     Indication: Product used for unknown indication
  4. DESOXIMETASONE [Suspect]
     Active Substance: DESOXIMETASONE
     Indication: Rheumatoid arthritis
     Route: 048

REACTIONS (56)
  - Abdominal discomfort [Unknown]
  - Arthropathy [Unknown]
  - Discomfort [Unknown]
  - Glossodynia [Unknown]
  - Hand deformity [Unknown]
  - Pain [Not Recovered/Not Resolved]
  - Pemphigus [Not Recovered/Not Resolved]
  - Rheumatoid arthritis [Not Recovered/Not Resolved]
  - Swelling [Not Recovered/Not Resolved]
  - Systemic lupus erythematosus [Not Recovered/Not Resolved]
  - Wound [Not Recovered/Not Resolved]
  - Fatigue [Unknown]
  - Anti-cyclic citrullinated peptide antibody positive [Unknown]
  - Arthralgia [Unknown]
  - Blister [Unknown]
  - Blood cholesterol increased [Unknown]
  - Chest pain [Unknown]
  - Condition aggravated [Unknown]
  - Drug intolerance [Unknown]
  - Eye injury [Unknown]
  - Fibromyalgia [Unknown]
  - Gastrointestinal disorder [Unknown]
  - General physical health deterioration [Unknown]
  - Helicobacter infection [Unknown]
  - Hepatic enzyme increased [Unknown]
  - Ill-defined disorder [Unknown]
  - Impaired healing [Unknown]
  - Infusion related reaction [Unknown]
  - Injury [Unknown]
  - Irritable bowel syndrome [Unknown]
  - Joint swelling [Unknown]
  - Liver disorder [Unknown]
  - Liver injury [Unknown]
  - Lower respiratory tract infection [Unknown]
  - Lupus vulgaris [Unknown]
  - Duodenal ulcer perforation [Unknown]
  - Hypersensitivity [Unknown]
  - Drug hypersensitivity [Unknown]
  - Folliculitis [Unknown]
  - Confusional state [Unknown]
  - Alopecia [Unknown]
  - Abdominal pain [Unknown]
  - Diarrhoea [Unknown]
  - Rash [Not Recovered/Not Resolved]
  - Abdominal pain upper [Unknown]
  - Dizziness [Unknown]
  - Headache [Unknown]
  - Hypertension [Unknown]
  - Dyspnoea [Unknown]
  - Infection [Unknown]
  - Drug ineffective [Not Recovered/Not Resolved]
  - Maternal exposure during pregnancy [Unknown]
  - Contraindicated product administered [Unknown]
  - Product use issue [Not Recovered/Not Resolved]
  - Intentional product use issue [Unknown]
  - Off label use [Not Recovered/Not Resolved]
